FAERS Safety Report 17427991 (Version 1)
Quarter: 2020Q1

REPORT INFORMATION
  Report Type: Spontaneous
  Country: US (occurrence: US)
  Receive Date: 20200217
  Receipt Date: 20200217
  Transmission Date: 20200409
  Serious: No
  Sender: FDA-Public Use
  Company Number: US-AMGEN-USASP2020023719

PATIENT
  Sex: Male
  Weight: 82.99 kg

DRUGS (4)
  1. ENBREL [Suspect]
     Active Substance: ETANERCEPT
     Indication: PRODUCT USED FOR UNKNOWN INDICATION
     Dosage: UNK
     Route: 065
  2. MOBIC [Suspect]
     Active Substance: MELOXICAM
     Indication: ARTHRALGIA
     Dosage: UNK
     Route: 065
  3. HUMIRA [Suspect]
     Active Substance: ADALIMUMAB
     Indication: PSORIATIC ARTHROPATHY
     Dosage: 20 MILLIGRAM, Q2WK
     Route: 058
  4. CELEBREX [Concomitant]
     Active Substance: CELECOXIB
     Indication: ARTHRALGIA

REACTIONS (3)
  - Hernia [Unknown]
  - Therapeutic response shortened [Not Recovered/Not Resolved]
  - Arthralgia [Not Recovered/Not Resolved]
